FAERS Safety Report 6735972-3 (Version None)
Quarter: 2010Q2

REPORT INFORMATION
  Report Type: 
  Country: None (occurrence: None)
  Receive Date: 20100521
  Receipt Date: 20100517
  Transmission Date: 20101027
  Serious: Yes (Hospitalization)
  Sender: FDA-Public Use
  Company Number: B0656691A

PATIENT
  Sex: Female

DRUGS (1)
  1. ZENTEL [Suspect]
     Indication: ECHINOCOCCIASIS
     Dosage: 800MG PER DAY
     Route: 048
     Dates: start: 20001113, end: 20010213

REACTIONS (1)
  - LIVER DISORDER [None]
